FAERS Safety Report 7714197-9 (Version None)
Quarter: 2011Q3

REPORT INFORMATION
  Report Type: 
  Country: None (occurrence: None)
  Receive Date: 20110829
  Receipt Date: 20091116
  Transmission Date: 20111222
  Serious: No
  Sender: FDA-Public Use
  Company Number: US-BIOGENIDEC-2009BI037542

PATIENT
  Sex: Female

DRUGS (2)
  1. LISINOPRIL [Concomitant]
     Indication: HYPERTENSION
  2. TYSABRI [Suspect]
     Indication: MULTIPLE SCLEROSIS
     Route: 042
     Dates: start: 20091007

REACTIONS (8)
  - TREMOR [None]
  - VISION BLURRED [None]
  - MEMORY IMPAIRMENT [None]
  - CONTUSION [None]
  - HYPERTENSION [None]
  - NUCLEAR MAGNETIC RESONANCE IMAGING ABNORMAL [None]
  - FATIGUE [None]
  - STRESS [None]
